FAERS Safety Report 7544172-9 (Version None)
Quarter: 2011Q2

REPORT INFORMATION
  Report Type: 
  Country: None (occurrence: None)
  Receive Date: 20110613
  Receipt Date: 20070316
  Transmission Date: 20111010
  Serious: Yes (Other)
  Sender: FDA-Public Use
  Company Number: PHNR2007AU00621

PATIENT
  Sex: Male

DRUGS (4)
  1. CLOZAPINE [Suspect]
     Indication: SCHIZOPHRENIA
     Dosage: 25-800MG
     Route: 048
     Dates: start: 19961024, end: 19970826
  2. CLOZAPINE [Suspect]
     Dosage: 12.5-200MG NOCTE
     Route: 048
     Dates: start: 20061016, end: 20070309
  3. SERC [Concomitant]
     Dosage: 4 MG, BID
  4. VALPROATE SODIUM [Concomitant]
     Dosage: 1.5 MG, BID

REACTIONS (10)
  - BLOOD CREATINE PHOSPHOKINASE MB [None]
  - ECHOCARDIOGRAM ABNORMAL [None]
  - DIZZINESS [None]
  - PALPITATIONS [None]
  - LEFT VENTRICULAR HYPERTROPHY [None]
  - HEART RATE IRREGULAR [None]
  - TACHYCARDIA [None]
  - CHEST PAIN [None]
  - ELECTROCARDIOGRAM CHANGE [None]
  - VENTRICULAR ARRHYTHMIA [None]
